FAERS Safety Report 9837237 (Version 1)
Quarter: 2013Q4

REPORT INFORMATION
  Report Type: Spontaneous
  Country: GB (occurrence: None)
  Receive Date: 20131121
  Receipt Date: 20131121
  Transmission Date: 20140711
  Serious: Yes (Other)
  Sender: FDA-Public Use
  Company Number: E2B_00001215

PATIENT
  Age: 31 Year
  Sex: Male
  Weight: 45 kg

DRUGS (8)
  1. CEFOTAXIME [Suspect]
     Indication: PRODUCT USED FOR UNKNOWN INDICATION
     Dates: start: 20130517
  2. THIAMINE [Concomitant]
  3. DIPROBASE [Concomitant]
  4. LANSOPRAZOLE [Concomitant]
  5. LEVETIRACETAM [Concomitant]
  6. PARACETAMOL [Concomitant]
  7. QUININE [Concomitant]
  8. VITAMIN B [Concomitant]

REACTIONS (2)
  - Pain in extremity [None]
  - Paraesthesia [None]
